FAERS Safety Report 6096587-6 (Version None)
Quarter: 2009Q1

REPORT INFORMATION
  Report Type: 
  Country: None (occurrence: None)
  Receive Date: 20090225
  Receipt Date: 20090209
  Transmission Date: 20090719
  Serious: Yes (Life-Threatening, Hospitalization)
  Sender: FDA-Public Use
  Company Number: 8042828

PATIENT
  Age: 39 Year
  Sex: Male

DRUGS (1)
  1. THEOPHYLLINE [Suspect]
     Dosage: 20 DF ONCE PO
     Route: 048

REACTIONS (20)
  - BLOOD BICARBONATE DECREASED [None]
  - BLOOD GLUCOSE INCREASED [None]
  - BLOOD PH DECREASED [None]
  - BLOOD POTASSIUM DECREASED [None]
  - BLOOD SODIUM INCREASED [None]
  - DRUG TOXICITY [None]
  - GASTROINTESTINAL SOUNDS ABNORMAL [None]
  - GRAND MAL CONVULSION [None]
  - INCORRECT DOSE ADMINISTERED [None]
  - NO THERAPEUTIC RESPONSE [None]
  - OESOPHAGEAL ULCER [None]
  - PALPITATIONS [None]
  - PANCREATITIS ACUTE [None]
  - PCO2 DECREASED [None]
  - PO2 INCREASED [None]
  - RENAL FAILURE ACUTE [None]
  - RESTLESSNESS [None]
  - RHABDOMYOLYSIS [None]
  - SUPRAVENTRICULAR TACHYCARDIA [None]
  - THIRST [None]
